FAERS Safety Report 18971040 (Version 1)
Quarter: 2021Q1

REPORT INFORMATION
  Report Type: Spontaneous
  Country: CA (occurrence: CA)
  Receive Date: 20210305
  Receipt Date: 20210305
  Transmission Date: 20210420
  Serious: Yes (Hospitalization)
  Sender: FDA-Public Use
  Company Number: CA-AUROBINDO-AUR-APL-2019-082227

PATIENT
  Age: 93 Year
  Sex: Male

DRUGS (14)
  1. PREDNISONE. [Concomitant]
     Active Substance: PREDNISONE
     Indication: PEMPHIGOID
     Dosage: 5 MILLIGRAM, TWO TIMES A DAY
     Route: 065
  2. ESCITALOPRAM [Suspect]
     Active Substance: ESCITALOPRAM OXALATE
     Dosage: 5 MILLIGRAM, ONCE A DAY
     Route: 065
  3. TELMISARTAN. [Suspect]
     Active Substance: TELMISARTAN
     Indication: MYOCARDIAL INFARCTION
     Dosage: 40 MILLIGRAM, ONCE A DAY
     Route: 065
  4. APO?METOPROLOL [Suspect]
     Active Substance: METOPROLOL
     Indication: CORONARY ARTERY DISEASE
     Dosage: 50 MILLIGRAM, ONCE A DAY
     Route: 065
  5. TAMSULOSIN CR [Concomitant]
     Active Substance: TAMSULOSIN
     Indication: NOCTURIA
     Dosage: 0.4 MILLIGRAM, ONCE A DAY AT BEDTIME
     Route: 065
  6. PANTOPRAZOLE [Suspect]
     Active Substance: PANTOPRAZOLE
     Indication: GASTROINTESTINAL HAEMORRHAGE
     Dosage: 40 MILLIGRAM, TWO TIMES A DAY
     Route: 065
  7. TELMISARTAN. [Suspect]
     Active Substance: TELMISARTAN
     Indication: CORONARY ARTERY DISEASE
     Dosage: 80 MILLIGRAM, ONCE A DAY
     Route: 065
  8. APO?METOPROLOL [Suspect]
     Active Substance: METOPROLOL
     Indication: MYOCARDIAL INFARCTION
     Dosage: 25 MILLIGRAM, ONCE A DAY
     Route: 065
  9. APO?LORAZEPAM [Suspect]
     Active Substance: LORAZEPAM
     Indication: INSOMNIA
     Dosage: 1 MILLIGRAM AT BEDTIME AS NEEDED
     Route: 065
  10. LOPERAMIDE [Concomitant]
     Active Substance: LOPERAMIDE
     Indication: DIARRHOEA
     Dosage: 1 MILLIGRAM AS NEEDED
     Route: 065
  11. ESCITALOPRAM [Suspect]
     Active Substance: ESCITALOPRAM OXALATE
     Indication: DEPRESSION
     Dosage: 10 MILLIGRAM, ONCE A DAY
     Route: 065
  12. TELMISARTAN. [Suspect]
     Active Substance: TELMISARTAN
     Dosage: 20 MILLIGRAM, ONCE A DAY
     Route: 065
  13. APO?LORAZEPAM [Suspect]
     Active Substance: LORAZEPAM
     Dosage: 0.5 MILLIGRAM AT BEDTIME
     Route: 065
  14. APO?LORAZEPAM [Suspect]
     Active Substance: LORAZEPAM
     Dosage: 0.25 MILLIGRAM AT BEDTIME
     Route: 065

REACTIONS (14)
  - Anal incontinence [Recovered/Resolved]
  - Dizziness [Recovered/Resolved]
  - Fatigue [Unknown]
  - Orthostatic hypotension [Recovering/Resolving]
  - Somnolence [Unknown]
  - Balance disorder [Unknown]
  - Fall [Recovering/Resolving]
  - Skin laceration [Unknown]
  - Diarrhoea [Recovered/Resolved]
  - Hyponatraemia [Recovering/Resolving]
  - Vitamin D deficiency [Recovering/Resolving]
  - Sedation complication [Recovering/Resolving]
  - Vitamin B12 deficiency [Recovering/Resolving]
  - Depressed mood [Recovered/Resolved]
